FAERS Safety Report 8200251 (Version 4)
Quarter: 2014Q2

REPORT INFORMATION
  Report Type: Spontaneous
  Country: US (occurrence: US)
  Receive Date: 20111026
  Receipt Date: 20140401
  Transmission Date: 20141212
  Serious: Yes (Hospitalization, Other)
  Sender: FDA-Public Use
  Company Number: US-ROCHE-527488

PATIENT
  Age: 16 Year
  Sex: Male
  Weight: 77.1 kg

DRUGS (4)
  1. ACCUTANE [Suspect]
     Indication: ACNE
     Route: 065
     Dates: start: 19961029, end: 19970128
  2. ACCUTANE [Suspect]
     Route: 065
     Dates: start: 19970827, end: 19980115
  3. ACCUTANE [Suspect]
     Route: 065
     Dates: start: 19980604, end: 19980709
  4. ACCUTANE [Suspect]
     Route: 065
     Dates: start: 20010924, end: 20011224

REACTIONS (10)
  - Colitis ulcerative [Recovered/Resolved]
  - Tibia fracture [Recovering/Resolving]
  - Inflammatory bowel disease [Unknown]
  - Proctitis [Unknown]
  - Attention deficit/hyperactivity disorder [Unknown]
  - Depression [Recovering/Resolving]
  - Anaemia [Recovered/Resolved]
  - Colitis [Unknown]
  - Sinusitis [Unknown]
  - Headache [Unknown]
